FAERS Safety Report 7512108-2 (Version None)
Quarter: 2011Q2

REPORT INFORMATION
  Report Type: 
  Country: None (occurrence: None)
  Receive Date: 20110519
  Receipt Date: 20110505
  Transmission Date: 20111010
  Serious: Yes (Hospitalization)
  Sender: FDA-Public Use
  Company Number: 1000020922

PATIENT
  Age: 80 Year
  Sex: Female

DRUGS (11)
  1. AXURA (MEMANTINE HYDROCHLORIDE)(MEMANTINE  HYDROCHLORIDE) [Concomitant]
  2. IDALPREM (LORAZEPAM)(LORAZEPAM) [Concomitant]
  3. FUROSEMIDE [Concomitant]
  4. IDALPREM (LORAZEPAM)(LORAZEPAM) [Concomitant]
  5. RANITIDINE [Concomitant]
  6. ENALAPRIL MALEATE [Concomitant]
  7. LIPLAT (PRAVASTATIN SODIUM) (PRAVASTATIN SODIUM) [Concomitant]
  8. PLAVIX [Suspect]
     Dosage: 75 MG(75 MG, 1IN 1 D), ORAL
     Route: 048
     Dates: start: 20070101, end: 20100816
  9. REMINYL (GALANTAMINE) (GALANTAMINE) [Concomitant]
  10. RANITIDINE [Concomitant]
  11. CITALOPRAM HYDROBROMIDE [Suspect]
     Dosage: 60 MG (30 MG, 2 IN 1 D),ORAL
     Route: 048
     Dates: start: 20060801, end: 20100816

REACTIONS (7)
  - BLOOD CREATININE INCREASED [None]
  - RED BLOOD CELLS URINE POSITIVE [None]
  - OVERDOSE [None]
  - LOWER GASTROINTESTINAL HAEMORRHAGE [None]
  - BLOOD PRESSURE DECREASED [None]
  - DRUG INTERACTION [None]
  - WHITE BLOOD CELLS URINE POSITIVE [None]
